FAERS Safety Report 8323229-9 (Version None)
Quarter: 2012Q2

REPORT INFORMATION
  Report Type: 
  Country: None (occurrence: None)
  Receive Date: 20120430
  Receipt Date: 20120423
  Transmission Date: 20120825
  Serious: Yes (Death)
  Sender: FDA-Public Use
  Company Number: PHHY2012US035362

PATIENT
  Age: 90 Year
  Sex: Female

DRUGS (2)
  1. METOPROLOL TARTRATE [Suspect]
     Route: 048
  2. TIMOLOL MALEATE [Suspect]
     Route: 048

REACTIONS (1)
  - MEDICATION ERROR [None]
